FAERS Safety Report 19774397 (Version 4)
Quarter: 2021Q3

REPORT INFORMATION
  Report Type: Spontaneous
  Country: US (occurrence: US)
  Receive Date: 20210901
  Receipt Date: 20210929
  Transmission Date: 20211014
  Serious: Yes (Hospitalization, Other)
  Sender: FDA-Public Use
  Company Number: US-VERTEX PHARMACEUTICALS-2021-013083

PATIENT
  Age: 17 Year
  Sex: Female

DRUGS (1)
  1. TRIKAFTA [Suspect]
     Active Substance: ELEXACAFTOR\IVACAFTOR\TEZACAFTOR
     Indication: CYSTIC FIBROSIS
     Dosage: 2 ORANGE TABS IN MORNING; 1 BLUE TAB IN EVENING
     Route: 048
     Dates: start: 20200923

REACTIONS (4)
  - Diffuse axonal injury [Recovering/Resolving]
  - Dysphagia [Recovering/Resolving]
  - Haematoma [Recovering/Resolving]
  - Road traffic accident [Recovered/Resolved]

NARRATIVE: CASE EVENT DATE: 20210820
